FAERS Safety Report 9911798 (Version 2)
Quarter: 2014Q1

REPORT INFORMATION
  Report Type: Spontaneous
  Country: US (occurrence: US)
  Receive Date: 20140219
  Receipt Date: 20140219
  Transmission Date: 20141002
  Serious: No
  Sender: FDA-Public Use
  Company Number: US-MYLANLABS-2013S1001720

PATIENT
  Sex: Male

DRUGS (1)
  1. EPIPEN [Suspect]
     Dates: start: 20130102

REACTIONS (3)
  - Accidental exposure to product [Unknown]
  - Expired drug administered [None]
  - Wrong technique in drug usage process [None]
